FAERS Safety Report 9823195 (Version 1)
Quarter: 2014Q1

REPORT INFORMATION
  Report Type: Spontaneous
  Country: US (occurrence: US)
  Receive Date: 20140116
  Receipt Date: 20140116
  Transmission Date: 20141002
  Serious: Yes (Other)
  Sender: FDA-Public Use
  Company Number: US-NAPPMUNDI-USA-2013-0107060

PATIENT
  Age: 43 Year
  Sex: Male

DRUGS (3)
  1. DILAUDID INJECTION [Suspect]
     Indication: PAIN
     Dosage: 10 MG, UNK
     Route: 042
  2. OXYCONTIN (NDA 22-272) [Suspect]
     Indication: PAIN
  3. KRATOM [Suspect]
     Indication: PAIN

REACTIONS (2)
  - Substance abuse [Unknown]
  - Drug withdrawal syndrome [Unknown]
